FAERS Safety Report 19428680 (Version 1)
Quarter: 2021Q2

REPORT INFORMATION
  Report Type: Spontaneous
  Country: US (occurrence: US)
  Receive Date: 20210617
  Receipt Date: 20210617
  Transmission Date: 20210717
  Serious: Yes (Other)
  Sender: FDA-Public Use
  Company Number: None

PATIENT
  Age: 72 Year
  Sex: Female
  Weight: 96.2 kg

DRUGS (1)
  1. EVENITY [Suspect]
     Active Substance: ROMOSOZUMAB-AQQG
     Indication: OSTEOPOROSIS
     Dates: start: 20210610

REACTIONS (5)
  - Injection site warmth [None]
  - Injection site reaction [None]
  - Peripheral swelling [None]
  - Injection site pain [None]
  - Erythema [None]

NARRATIVE: CASE EVENT DATE: 20210610
